FAERS Safety Report 8894198 (Version 1)
Quarter: 2012Q4

REPORT INFORMATION
  Report Type: 
  Country: US (occurrence: US)
  Receive Date: 20121107
  Receipt Date: 20121107
  Transmission Date: 20130627
  Serious: No
  Sender: FDA-Public Use
  Company Number: US-AMGEN-USASP2011050781

PATIENT
  Age: 84 Year
  Sex: Female

DRUGS (13)
  1. ENBREL [Suspect]
     Indication: RHEUMATOID ARTHRITIS
     Dosage: 50 mg, qwk
     Route: 058
  2. VITAMIN D /00107901/ [Concomitant]
  3. ASPIRIN [Concomitant]
  4. BYSTOLIC [Concomitant]
  5. EVISTA [Concomitant]
  6. AMLODIPINE [Concomitant]
  7. POTASSIUM [Concomitant]
  8. FOLIC ACID [Concomitant]
  9. VITAMIN B12                        /00056201/ [Concomitant]
  10. CITRACAL + D                       /01438101/ [Concomitant]
  11. FISH OIL [Concomitant]
  12. PRILOSEC                           /00661201/ [Concomitant]
  13. PREDNISONE [Concomitant]

REACTIONS (5)
  - Oedema peripheral [Unknown]
  - Joint swelling [Unknown]
  - Pruritus [Not Recovered/Not Resolved]
  - Injection site erythema [Recovered/Resolved]
  - Injection site reaction [Recovered/Resolved]
